FAERS Safety Report 9494990 (Version 1)
Quarter: 2013Q3

REPORT INFORMATION
  Report Type: Report from Study
  Country: FR (occurrence: FR)
  Receive Date: 20130903
  Receipt Date: 20130903
  Transmission Date: 20140515
  Serious: Yes (Other)
  Sender: FDA-Public Use
  Company Number: FR-CELGENEUS-056-21880-13083400

PATIENT
  Age: 74 Year
  Sex: Female
  Weight: 61 kg

DRUGS (8)
  1. REVLIMID [Suspect]
     Indication: MYELODYSPLASTIC SYNDROME
     Dosage: 10 MILLIGRAM
     Route: 048
     Dates: start: 20110927, end: 20120118
  2. RED BLOOD CELLS [Concomitant]
     Indication: ANAEMIA
     Route: 065
     Dates: start: 20111006, end: 20111006
  3. RED BLOOD CELLS [Concomitant]
     Route: 065
     Dates: start: 20111020, end: 20111020
  4. RED BLOOD CELLS [Concomitant]
     Route: 065
     Dates: start: 201111, end: 201111
  5. RED BLOOD CELLS [Concomitant]
     Route: 065
     Dates: start: 20111122, end: 20111122
  6. RED BLOOD CELLS [Concomitant]
     Route: 065
     Dates: start: 20111207, end: 20111207
  7. RED BLOOD CELLS [Concomitant]
     Route: 065
     Dates: start: 20111208, end: 20111208
  8. RED BLOOD CELLS [Concomitant]
     Route: 065
     Dates: start: 20111213, end: 20111213

REACTIONS (1)
  - Adenocarcinoma of colon [Recovered/Resolved]
